FAERS Safety Report 6581113-5 (Version None)
Quarter: 2010Q1

REPORT INFORMATION
  Report Type: 
  Country: None (occurrence: None)
  Receive Date: 20100215
  Receipt Date: 20100205
  Transmission Date: 20100710
  Serious: Yes (Other)
  Sender: FDA-Public Use
  Company Number: PHHY2010US07229

PATIENT
  Sex: Female

DRUGS (7)
  1. ZELNORM [Suspect]
     Dosage: 6 MG
     Route: 048
     Dates: start: 20010101
  2. EFFEXOR [Concomitant]
  3. SEROQUEL [Concomitant]
  4. OMEPRAZOLE [Concomitant]
  5. ATENOLOL [Concomitant]
  6. FOCALIN [Concomitant]
  7. FLEXERIL [Concomitant]

REACTIONS (3)
  - CARDIAC ABLATION [None]
  - HEART RATE INCREASED [None]
  - LOSS OF CONSCIOUSNESS [None]
